FAERS Safety Report 8273841-0 (Version None)
Quarter: 2012Q2

REPORT INFORMATION
  Report Type: 
  Country: None (occurrence: None)
  Receive Date: 20120411
  Receipt Date: 20120328
  Transmission Date: 20120825
  Serious: Yes (Hospitalization)
  Sender: FDA-Public Use
  Company Number: SE-NOVOPROD-345605

PATIENT
  Age: 74 Year
  Sex: Male

DRUGS (6)
  1. NOVOMIX 30 FLEXPEN [Concomitant]
  2. NITROMEX [Concomitant]
  3. ASPIRIN [Concomitant]
     Dosage: 75 MG, QD
  4. GLUCOPHAGE [Concomitant]
     Dosage: 500 MG, QD
  5. METOPROLOL SUCCINATE [Concomitant]
     Dosage: 50 MG, QD
  6. VICTOZA [Suspect]
     Indication: TYPE 2 DIABETES MELLITUS
     Dosage: UNK
     Route: 065
     Dates: start: 20111206, end: 20111212

REACTIONS (1)
  - EYELID PTOSIS [None]
